FAERS Safety Report 9135247 (Version 1)
Quarter: 2013Q1

REPORT INFORMATION
  Report Type: Spontaneous
  Country: CR (occurrence: CR)
  Receive Date: 20130304
  Receipt Date: 20130304
  Transmission Date: 20140127
  Serious: Yes (Hospitalization)
  Sender: FDA-Public Use
  Company Number: CR-009507513-1303CRI000680

PATIENT
  Age: 43 Year
  Sex: Female

DRUGS (1)
  1. NUVARING [Suspect]
     Indication: CONTRACEPTION
     Dosage: 0.120MG/0.015MG
     Route: 067
     Dates: start: 2013

REACTIONS (3)
  - Pain [Recovered/Resolved]
  - Withdrawal bleed [Recovered/Resolved]
  - Incorrect drug administration duration [Unknown]
